FAERS Safety Report 6292820-6 (Version None)
Quarter: 2009Q3

REPORT INFORMATION
  Report Type: 
  Country: None (occurrence: None)
  Receive Date: 20090731
  Receipt Date: 20090720
  Transmission Date: 20100115
  Serious: Yes (Death)
  Sender: FDA-Public Use
  Company Number: FR-PFIZER INC-2009242452

PATIENT
  Age: 38 Year

DRUGS (6)
  1. DEPO-MEDROL [Suspect]
     Indication: B-CELL TYPE ACUTE LEUKAEMIA
     Dosage: 40 MG, 1X/DAY
     Route: 037
     Dates: start: 20090416, end: 20090416
  2. ARACYTINE [Suspect]
     Indication: B-CELL TYPE ACUTE LEUKAEMIA
     Dosage: 40 MG, 1X/DAY
     Route: 037
     Dates: start: 20090416, end: 20090416
  3. METHOTREXATE [Suspect]
     Indication: B-CELL TYPE ACUTE LEUKAEMIA
     Dosage: 15 MG, 1X/DAY
     Route: 037
     Dates: start: 20090416, end: 20090416
  4. CERUBIDIN [Suspect]
     Indication: B-CELL TYPE ACUTE LEUKAEMIA
     Dosage: 50 MG/M2, 1X/DAY
     Route: 042
     Dates: start: 20090416, end: 20090419
  5. VINCRISTINE [Suspect]
     Indication: B-CELL TYPE ACUTE LEUKAEMIA
     Dosage: 2 MG, 1X/DAY
     Route: 042
     Dates: start: 20090416, end: 20090416
  6. ENDOXAN [Suspect]
     Indication: B-CELL TYPE ACUTE LEUKAEMIA
     Dosage: 750 MG/M2, 1X/DAY
     Route: 042
     Dates: start: 20090416, end: 20090416

REACTIONS (15)
  - ANAEMIA [None]
  - BRAIN DEATH [None]
  - BRAIN HERNIATION [None]
  - BRAIN OEDEMA [None]
  - CARDIAC ARREST [None]
  - CHEST PAIN [None]
  - COMA [None]
  - GRAND MAL CONVULSION [None]
  - HAEMORRHAGE INTRACRANIAL [None]
  - MYDRIASIS [None]
  - PYREXIA [None]
  - RESPIRATORY ARREST [None]
  - SOMNOLENCE [None]
  - THROMBOPHLEBITIS [None]
  - VASCULITIS CEREBRAL [None]
